FAERS Safety Report 14317776 (Version 5)
Quarter: 2018Q1

REPORT INFORMATION
  Report Type: Spontaneous
  Country: IT (occurrence: IT)
  Receive Date: 20171222
  Receipt Date: 20180319
  Transmission Date: 20180509
  Serious: Yes (Hospitalization)
  Sender: FDA-Public Use
  Company Number: IT-PFIZER INC-2017542731

PATIENT
  Age: 71 Year
  Sex: Female

DRUGS (2)
  1. RAMIPRIL. [Suspect]
     Active Substance: RAMIPRIL
     Dosage: UNK
     Route: 048
     Dates: start: 20140120
  2. ATENOLOL. [Suspect]
     Active Substance: ATENOLOL
     Dosage: UNK
     Route: 048
     Dates: start: 20140120

REACTIONS (4)
  - Oedema peripheral [Unknown]
  - Arrhythmia [Unknown]
  - Asthenia [Unknown]
  - Bradycardia [Unknown]

NARRATIVE: CASE EVENT DATE: 20140120
